FAERS Safety Report 17648014 (Version 1)
Quarter: 2020Q2

REPORT INFORMATION
  Report Type: Spontaneous
  Country: ES (occurrence: ES)
  Receive Date: 20200409
  Receipt Date: 20200409
  Transmission Date: 20200713
  Serious: Yes (Life-Threatening)
  Sender: FDA-Public Use
  Company Number: ES-AUROBINDO-AUR-APL-2020-017139

PATIENT
  Age: 36 Year
  Sex: Male

DRUGS (1)
  1. IBUPROFEN. [Suspect]
     Active Substance: IBUPROFEN
     Indication: PHARYNGOTONSILLITIS
     Dosage: 600 MILLIGRAM, TOTAL
     Route: 048
     Dates: start: 20190825, end: 20190825

REACTIONS (5)
  - Dyspnoea [Recovered/Resolved]
  - Eyelid oedema [Recovered/Resolved]
  - Hypertransaminasaemia [Recovered/Resolved]
  - Urticaria [Recovered/Resolved]
  - Palatal oedema [Recovered/Resolved]

NARRATIVE: CASE EVENT DATE: 20190825
